FAERS Safety Report 4478723-8 (Version None)
Quarter: 2004Q3

REPORT INFORMATION
  Report Type: 
  Country: None (occurrence: None)
  Receive Date: 20040923
  Receipt Date: 20040618
  Transmission Date: 20050211
  Serious: No
  Sender: FDA-Public Use
  Company Number: USA040465708

PATIENT
  Age: 68 Year
  Sex: Female
  Weight: 64 kg

DRUGS (1)
  1. FORTEO [Suspect]
     Indication: OSTEOPOROSIS
     Dosage: 20 UG IN THE MORNING
     Dates: start: 20031201

REACTIONS (3)
  - ARTHRALGIA [None]
  - MIDDLE INSOMNIA [None]
  - PAIN IN EXTREMITY [None]
